FAERS Safety Report 23472452 (Version 4)
Quarter: 2025Q1

REPORT INFORMATION
  Report Type: Spontaneous
  Country: IE (occurrence: IE)
  Receive Date: 20240202
  Receipt Date: 20250110
  Transmission Date: 20250409
  Serious: Yes (Other)
  Sender: COVIS PHARMA GMBH
  Company Number: IE-Covis Pharma Europe B.V.-2024COV00117

PATIENT
  Age: 70 Year
  Sex: Male

DRUGS (1)
  1. ACLIDINIUM BROMIDE\FORMOTEROL FUMARATE [Suspect]
     Active Substance: ACLIDINIUM BROMIDE\FORMOTEROL FUMARATE

REACTIONS (5)
  - Myocardial infarction [Unknown]
  - Tooth discolouration [Unknown]
  - Tooth fracture [Unknown]
  - Tooth loss [Unknown]
  - Dry mouth [Unknown]
